FAERS Safety Report 6193306-X (Version None)
Quarter: 2009Q2

REPORT INFORMATION
  Report Type: 
  Country: None (occurrence: None)
  Receive Date: 20090514
  Receipt Date: 20090514
  Transmission Date: 20091009
  Serious: Yes (Hospitalization)
  Sender: FDA-Public Use
  Company Number: None

PATIENT
  Age: 67 Year
  Sex: Female
  Weight: 73.4827 kg

DRUGS (1)
  1. SPIRIVA [Suspect]
     Indication: MULTIPLE ALLERGIES
     Dosage: 1 CAPSULE ONCE A DAY INHAL
     Route: 055
     Dates: start: 20090508, end: 20090510

REACTIONS (9)
  - ATRIOVENTRICULAR BLOCK FIRST DEGREE [None]
  - BRONCHITIS [None]
  - CHEST PAIN [None]
  - DIZZINESS [None]
  - DRUG PRESCRIBING ERROR [None]
  - DYSPEPSIA [None]
  - SPUTUM ABNORMAL [None]
  - THROAT IRRITATION [None]
  - UPPER RESPIRATORY TRACT INFECTION [None]
